FAERS Safety Report 11215977 (Version 2)
Quarter: 2015Q3

REPORT INFORMATION
  Report Type: Report from Study
  Country: US (occurrence: US)
  Receive Date: 20150624
  Receipt Date: 20150713
  Transmission Date: 20151125
  Serious: Yes (Hospitalization)
  Sender: FDA-Public Use
  Company Number: US-ACTELION-A-US2015-118797

PATIENT
  Age: 58 Year
  Sex: Female

DRUGS (5)
  1. OPSUMIT [Suspect]
     Active Substance: MACITENTAN
     Indication: PULMONARY ARTERIAL HYPERTENSION
     Dosage: 10 MG, UNK
     Route: 048
     Dates: start: 20150519
  2. VELETRI [Suspect]
     Active Substance: EPOPROSTENOL
     Indication: PULMONARY ARTERIAL HYPERTENSION
     Dosage: 6 NG/KG, PER MIN
     Route: 042
     Dates: start: 20150309
  3. OXYGEN. [Concomitant]
     Active Substance: OXYGEN
  4. VELETRI [Suspect]
     Active Substance: EPOPROSTENOL
     Dosage: 3.95 NG/KG, PER MIN
     Route: 042
  5. COUMADIN [Concomitant]
     Active Substance: WARFARIN SODIUM

REACTIONS (11)
  - Abdominal distension [Recovered/Resolved]
  - Dizziness [Unknown]
  - Heart rate increased [Unknown]
  - Dyspnoea [Unknown]
  - Anaemia [Unknown]
  - Hypertension [Unknown]
  - Headache [Unknown]
  - Transfusion [Unknown]
  - Swelling [Recovered/Resolved]
  - Fatigue [Unknown]
  - Peripheral swelling [Recovered/Resolved]

NARRATIVE: CASE EVENT DATE: 20150601
